FAERS Safety Report 25551252 (Version 1)
Quarter: 2025Q3

REPORT INFORMATION
  Report Type: Spontaneous
  Country: US (occurrence: US)
  Receive Date: 20250714
  Receipt Date: 20250714
  Transmission Date: 20251021
  Serious: No
  Sender: INCYTE
  Company Number: US-EVENT-003389

PATIENT
  Age: 41 Year

DRUGS (1)
  1. OPZELURA [Suspect]
     Active Substance: RUXOLITINIB PHOSPHATE
     Indication: Vitiligo

REACTIONS (5)
  - Feeling cold [Unknown]
  - Asthenia [Unknown]
  - Oropharyngeal pain [Recovering/Resolving]
  - Fatigue [Unknown]
  - Headache [Unknown]
